FAERS Safety Report 14618533 (Version 2)
Quarter: 2018Q1

REPORT INFORMATION
  Report Type: Spontaneous
  Country: US (occurrence: US)
  Receive Date: 20180309
  Receipt Date: 20180312
  Transmission Date: 20180509
  Serious: Yes (Hospitalization)
  Sender: FDA-Public Use
  Company Number: US-BAYER-2018-005372

PATIENT
  Age: 64 Year
  Sex: Male
  Weight: 112 kg

DRUGS (2)
  1. BAYER LOW DOSE [Suspect]
     Active Substance: ASPIRIN
     Indication: HEADACHE
     Route: 065
  2. XARELTO [Suspect]
     Active Substance: RIVAROXABAN
     Indication: PULMONARY EMBOLISM
     Dosage: UNK
     Route: 048
     Dates: start: 20160702, end: 20161028

REACTIONS (2)
  - Haematuria [Recovering/Resolving]
  - Renal injury [Recovering/Resolving]

NARRATIVE: CASE EVENT DATE: 20161021
